FAERS Safety Report 4926023-1 (Version None)
Quarter: 2006Q1

REPORT INFORMATION
  Report Type: 
  Country: None (occurrence: None)
  Receive Date: 20060228
  Receipt Date: 20050728
  Transmission Date: 20060701
  Serious: No
  Sender: FDA-Public Use
  Company Number: US-GLAXOSMITHKLINE-A0568100A

PATIENT
  Age: 60 Year
  Sex: Male

DRUGS (9)
  1. LAMICTAL [Suspect]
     Indication: DEPRESSION
     Dosage: 25MG PER DAY
     Route: 048
     Dates: start: 20050717, end: 20050723
  2. TENORMIN [Concomitant]
  3. FENTANYL CITRATE [Concomitant]
  4. SOMA [Concomitant]
  5. LORAZEPAM [Concomitant]
  6. WELLBUTRIN [Concomitant]
  7. CELEXA [Concomitant]
  8. GABAPENTIN [Concomitant]
  9. PROTONIX [Concomitant]

REACTIONS (2)
  - RASH [None]
  - SOMNOLENCE [None]
